FAERS Safety Report 22068113 (Version 1)
Quarter: 2023Q1

REPORT INFORMATION
  Report Type: Spontaneous
  Country: VE (occurrence: None)
  Receive Date: 20230307
  Receipt Date: 20230307
  Transmission Date: 20230418
  Serious: Yes (Hospitalization)
  Sender: FDA-Public Use
  Company Number: VE-ROCHE-3289071

PATIENT
  Age: 36 Year
  Sex: Female

DRUGS (5)
  1. ZELBORAF [Suspect]
     Active Substance: VEMURAFENIB
     Indication: Metastatic malignant melanoma
     Dosage: 4 TABLETS IN THE MORNING
     Route: 048
     Dates: start: 20230110
  2. ZELBORAF [Suspect]
     Active Substance: VEMURAFENIB
     Dosage: 2 TABLETS IN THE MORNING
     Route: 048
  3. ZELBORAF [Suspect]
     Active Substance: VEMURAFENIB
     Dosage: 1 TABLET IN THE MORNING
     Route: 048
  4. COTELLIC [Suspect]
     Active Substance: COBIMETINIB
     Indication: Metastatic malignant melanoma
     Dosage: 3 TABLETS IN THE NOON
     Route: 048
     Dates: start: 20230110
  5. COTELLIC [Suspect]
     Active Substance: COBIMETINIB
     Dosage: 2 TABLETS IN THE NOON
     Route: 048

REACTIONS (10)
  - Rash [Unknown]
  - Flushing [Unknown]
  - Rash macular [Unknown]
  - Lip oedema [Unknown]
  - Blepharitis [Unknown]
  - Pruritus [Unknown]
  - Bradycardia [Unknown]
  - Swelling [Unknown]
  - Erythema [Unknown]
  - Axillary pain [Unknown]

NARRATIVE: CASE EVENT DATE: 20230127
